FAERS Safety Report 7399972-5 (Version None)
Quarter: 2011Q2

REPORT INFORMATION
  Report Type: 
  Country: None (occurrence: None)
  Receive Date: 20110407
  Receipt Date: 20110329
  Transmission Date: 20111010
  Serious: Yes (Other)
  Sender: FDA-Public Use
  Company Number: FR-SANOFI-AVENTIS-200715237EU

PATIENT
  Age: 68 Year
  Sex: Female

DRUGS (9)
  1. ZOCOR [Suspect]
     Dosage: DOSE AS USED: UNK
     Route: 048
  2. BACLOFEN [Suspect]
     Dosage: DOSE AS USED: UNK
     Route: 048
  3. MYOLASTAN [Suspect]
     Dosage: DOSE AS USED: UNK
     Route: 048
  4. ACUITEL [Suspect]
     Dosage: DOSE AS USED: UNK
     Route: 048
  5. GLUCOPHAGE [Suspect]
  6. AMARYL [Suspect]
     Route: 048
  7. AMPECYCLAL [Suspect]
     Dosage: DOSE AS USED: UNK
     Route: 048
  8. PIOGLITAZONE [Suspect]
     Indication: TYPE 2 DIABETES MELLITUS
     Dosage: DOSE AS USED: UNK
     Route: 048
     Dates: start: 20060201
  9. FLUDEX [Suspect]
     Dosage: DOSE AS USED: UNK DOSE UNIT: 1.5 MG
     Route: 048

REACTIONS (5)
  - VITAMIN D DEFICIENCY [None]
  - TIBIA FRACTURE [None]
  - HYPERPARATHYROIDISM [None]
  - OSTEOPOROSIS POSTMENOPAUSAL [None]
  - PATHOLOGICAL FRACTURE [None]
